FAERS Safety Report 21420202 (Version 1)
Quarter: 2022Q4

REPORT INFORMATION
  Report Type: Spontaneous
  Country: ES (occurrence: ES)
  Receive Date: 20221007
  Receipt Date: 20221007
  Transmission Date: 20230113
  Serious: Yes (Hospitalization, Other)
  Sender: FDA-Public Use
  Company Number: ES-AEMPS-1265952

PATIENT
  Age: 78 Year
  Sex: Female

DRUGS (8)
  1. METFORMIN [Suspect]
     Active Substance: METFORMIN HYDROCHLORIDE
     Indication: Type 2 diabetes mellitus
     Dosage: 1000 MILLIGRAM (1000.0MG C/12H)
     Route: 048
     Dates: start: 20210906, end: 20210917
  2. ALDACTONE [Concomitant]
     Active Substance: SPIRONOLACTONE
     Indication: Ascites
     Dosage: 100 MILLIGRAM (100.0 MG DE)
     Route: 048
     Dates: start: 20191115
  3. FOLIC ACID [Concomitant]
     Active Substance: FOLIC ACID
     Indication: Cirrhosis alcoholic
     Dosage: 5 MILLIGRAM (5.0 MG DE)
     Route: 048
     Dates: start: 20191024
  4. OMEPRAZOLE [Concomitant]
     Active Substance: OMEPRAZOLE
     Indication: Cirrhosis alcoholic
     Dosage: 40 MILLIGRAM (40.0 MG A-DE)
     Route: 048
     Dates: start: 20120920
  5. PARACETAMOL CINFA [Concomitant]
     Indication: Fracture
     Dosage: 650 MILLIGRAM (650.0 MG DECOCE)
     Route: 048
     Dates: start: 20191118
  6. Propranolol kern [Concomitant]
     Indication: Product used for unknown indication
     Dosage: 10.0 MG DECOCE
     Route: 048
     Dates: start: 20191024
  7. Quetiapine stada [Concomitant]
     Indication: Cognitive disorder
     Dosage: 25 MILLIGRAM (25.0 MG CE)
     Route: 048
     Dates: start: 20191023
  8. RIFAXIMIN [Concomitant]
     Active Substance: RIFAXIMIN
     Indication: Encephalopathy
     Dosage: 200 MILLIGRAM, 3 TIMES A DAY (200.0 MG EVERY 8 HOURS)
     Route: 048
     Dates: start: 20191023

REACTIONS (2)
  - Chronic kidney disease [Recovered/Resolved]
  - Diarrhoea [Recovered/Resolved]

NARRATIVE: CASE EVENT DATE: 20210917
